FAERS Safety Report 9548485 (Version 1)
Quarter: 2013Q2

REPORT INFORMATION
  Report Type: Spontaneous
  Country: US (occurrence: None)
  Receive Date: 20130627
  Receipt Date: 20130627
  Transmission Date: 20140414
  Serious: No
  Sender: FDA-Public Use
  Company Number: 1000044770

PATIENT
  Age: 81 Year
  Sex: Male

DRUGS (12)
  1. LINZESS (LINACLOTIDE) (145 MICROGRAM, CAPSULES) [Suspect]
     Indication: CONSTIPATION
     Dosage: 145 MGC, 1 IN 1 D
     Route: 048
     Dates: start: 20130404
  2. SYNTHROID (LEVOTHYROXINE SODIUM) (LEVOTHYROXINE SODIUM) [Concomitant]
  3. HYDROCHLOROTHIAZIDE (HYDROCHLOROTHIAZIDE) (HYDROCHLOROTHIAZIDE) [Concomitant]
  4. LANSOPRAZOLE (LANSOPRAZOLE) (LANSOPRAZOLE) [Concomitant]
  5. FLUTICASONE PROPIONATE (FLUTICASONE PROPIONATE) (FLUTICASONE PROPIONATE) [Concomitant]
  6. ATORVASTATIN (ATORVASTATIN) (ATORVASTATIN) [Concomitant]
  7. AMLODIPINE (AMLODIPINE) (AMLODIPINE) [Concomitant]
  8. METOCLAMPRAMIDE METOCLAMPRAMIDE) (METOCLAMPRAMIDE) [Concomitant]
  9. VITAMIN E (VITAMIN E) (VITAMIN E) [Concomitant]
  10. CALCIUM PLUS VITAMIN D (NOS) (CALCIUM PLAUS VITAMIN D (NOS)) (CALCIUM PLUS VITAMIN D (NOS)) [Concomitant]
  11. COLACE [Concomitant]
  12. MIRALAX (POLYETHYLENE GLYCOL) (POLYETHYLENE GLYCOL) [Concomitant]

REACTIONS (1)
  - Pruritus [None]
